FAERS Safety Report 4925277-5 (Version None)
Quarter: 2006Q1

REPORT INFORMATION
  Report Type: 
  Country: None (occurrence: None)
  Receive Date: 20060228
  Receipt Date: 20060222
  Transmission Date: 20060701
  Serious: Yes (Other)
  Sender: FDA-Public Use
  Company Number: US-GLAXOSMITHKLINE-A0594821A

PATIENT
  Age: 53 Year
  Sex: Female

DRUGS (3)
  1. AVANDIA [Suspect]
     Dosage: 8MG TWICE PER DAY
     Route: 048
  2. AMARYL [Concomitant]
  3. DECONGESTANT [Concomitant]

REACTIONS (5)
  - CATARACT [None]
  - DIZZINESS [None]
  - IMPAIRED HEALING [None]
  - RASH [None]
  - VISUAL DISTURBANCE [None]
